FAERS Safety Report 17973308 (Version 5)
Quarter: 2020Q4

REPORT INFORMATION
  Report Type: Report from Study
  Country: US (occurrence: US)
  Receive Date: 20200702
  Receipt Date: 20201202
  Transmission Date: 20210113
  Serious: Yes (Hospitalization)
  Sender: FDA-Public Use
  Company Number: US-DSJP-DSU-2020-119015

PATIENT
  Age: 61 Year
  Sex: Female
  Weight: 75.3 kg

DRUGS (9)
  1. METOPROLOL SUCCINATE. [Concomitant]
     Active Substance: METOPROLOL SUCCINATE
     Indication: HYPERTENSION
     Dosage: 100 MG, QD
     Route: 048
     Dates: start: 20190826
  2. PEXIDARTINIB [Suspect]
     Active Substance: PEXIDARTINIB
     Dosage: 200 MG, QD
     Route: 048
  3. PEXIDARTINIB [Suspect]
     Active Substance: PEXIDARTINIB
     Dosage: 600 MG, QD
     Route: 048
     Dates: end: 20200710
  4. CHOLECALCIFEROL [Concomitant]
     Active Substance: CHOLECALCIFEROL
     Indication: PRODUCT USED FOR UNKNOWN INDICATION
     Dosage: 2000 IU, QD
     Route: 048
  5. PEXIDARTINIB [Suspect]
     Active Substance: PEXIDARTINIB
     Dosage: UNK
     Route: 048
     Dates: start: 20200824
  6. LEXAPRO [Concomitant]
     Active Substance: ESCITALOPRAM OXALATE
     Indication: ANXIETY
     Dosage: 10 MG, QD
     Route: 048
     Dates: start: 20191227
  7. PEXIDARTINIB [Suspect]
     Active Substance: PEXIDARTINIB
     Indication: SYNOVITIS
     Dosage: 200MG AM, 400MG PM, BID
     Route: 048
     Dates: start: 20200620, end: 20200722
  8. PEXIDARTINIB [Suspect]
     Active Substance: PEXIDARTINIB
     Indication: SYNOVITIS
     Dosage: 200 MG, QD
     Route: 048
  9. LORAZEPAM. [Concomitant]
     Active Substance: LORAZEPAM
     Indication: ANXIETY
     Dosage: 0.5 MG, ONCE EVERY 12HR
     Route: 048
     Dates: start: 20191024

REACTIONS (12)
  - Dysphagia [Not Recovered/Not Resolved]
  - Erythema [Unknown]
  - Transaminases increased [Recovering/Resolving]
  - Pharyngeal contusion [Not Recovered/Not Resolved]
  - Feeling abnormal [Recovered/Resolved]
  - Pancreatitis [Unknown]
  - Liver function test increased [Not Recovered/Not Resolved]
  - Diarrhoea [Recovered/Resolved]
  - Hepatic enzyme decreased [Unknown]
  - Product dose omission issue [Unknown]
  - Hepatic enzyme abnormal [Recovered/Resolved]
  - Oropharyngeal blistering [Not Recovered/Not Resolved]

NARRATIVE: CASE EVENT DATE: 2020
